FAERS Safety Report 19295482 (Version 1)
Quarter: 2021Q2

REPORT INFORMATION
  Report Type: Spontaneous
  Country: CA (occurrence: CA)
  Receive Date: 20210524
  Receipt Date: 20210524
  Transmission Date: 20210717
  Serious: Yes (Life-Threatening, Hospitalization, Other)
  Sender: FDA-Public Use
  Company Number: CA-GLAXOSMITHKLINE-CA2020GSK245504

PATIENT
  Age: 52 Year
  Sex: Female

DRUGS (15)
  1. BUDESONIDE + FORMOTEROL [Suspect]
     Active Substance: BUDESONIDE\FORMOTEROL
     Indication: ASTHMA
     Dosage: UNK
  2. XYLOMETAZOLINE [Interacting]
     Active Substance: XYLOMETAZOLINE
     Dosage: 1 DF, QD
     Route: 045
  3. DULOXETINE. [Interacting]
     Active Substance: DULOXETINE
     Indication: SCIATICA
     Dosage: 60 MG, QD
     Route: 065
  4. XYLOMETAZOLINE [Interacting]
     Active Substance: XYLOMETAZOLINE
     Indication: NASAL CONGESTION
     Dosage: UNK, QD
  5. DULOXETINE. [Interacting]
     Active Substance: DULOXETINE
     Dosage: UNK
  6. XYLOMETAZOLINE [Interacting]
     Active Substance: XYLOMETAZOLINE
     Dosage: UNK, QD
     Route: 061
  7. DULOXETINE. [Interacting]
     Active Substance: DULOXETINE
     Indication: PRODUCT USED FOR UNKNOWN INDICATION
     Dosage: 30 MG, QOD
  8. BUDESONIDE + FORMOTEROL [Concomitant]
     Active Substance: BUDESONIDE\FORMOTEROL
     Indication: PRODUCT USED FOR UNKNOWN INDICATION
     Dosage: UNK
     Route: 055
  9. XYLOMETAZOLINE [Interacting]
     Active Substance: XYLOMETAZOLINE
     Dosage: 1 DF
     Route: 045
  10. DULOXETINE. [Interacting]
     Active Substance: DULOXETINE
     Dosage: 30 MG, QOD
  11. SALBUTAMOL [Concomitant]
     Active Substance: ALBUTEROL
     Indication: ASTHMA
     Dosage: UNK
  12. SALBUTAMOL [Suspect]
     Active Substance: ALBUTEROL
     Indication: PRODUCT USED FOR UNKNOWN INDICATION
     Dosage: UNK
  13. XYLOMETAZOLINE [Interacting]
     Active Substance: XYLOMETAZOLINE
     Indication: PRODUCT USED FOR UNKNOWN INDICATION
     Dosage: 2?3 TIMES DAILY
  14. SYMBICORT [Suspect]
     Active Substance: BUDESONIDE\FORMOTEROL FUMARATE DIHYDRATE
     Indication: PRODUCT USED FOR UNKNOWN INDICATION
     Dosage: UNK
  15. XYLOMETAZOLINE [Interacting]
     Active Substance: XYLOMETAZOLINE
     Dosage: UNK, QD
     Route: 061

REACTIONS (14)
  - Subarachnoid haemorrhage [Recovered/Resolved]
  - Nasal septum deviation [Unknown]
  - Hypertension [Recovered/Resolved]
  - Thunderclap headache [Recovered/Resolved]
  - Nasal mucosal disorder [Unknown]
  - Product use in unapproved indication [Recovered/Resolved]
  - Headache [Recovered/Resolved]
  - Rhinorrhoea [Recovered/Resolved]
  - Rebound nasal congestion [Recovered/Resolved]
  - Cerebral artery stenosis [Recovered/Resolved]
  - Allergy to animal [Recovered/Resolved]
  - Reversible cerebral vasoconstriction syndrome [Recovered/Resolved]
  - Nasal turbinate hypertrophy [Recovered/Resolved]
  - Drug interaction [Recovered/Resolved]
